FAERS Safety Report 16128577 (Version 3)
Quarter: 2019Q2

REPORT INFORMATION
  Report Type: Report from Study
  Country: None (occurrence: US)
  Receive Date: 20190328
  Receipt Date: 20190509
  Transmission Date: 20190711
  Serious: Yes (Other)
  Sender: FDA-Public Use
  Company Number: US-ABBVIE-19K-163-2672621-00

PATIENT
  Age: 54 Year
  Sex: Female
  Weight: 75.82 kg

DRUGS (1)
  1. HUMIRA [Suspect]
     Active Substance: ADALIMUMAB
     Indication: PSORIASIS
     Route: 058

REACTIONS (4)
  - Cholelithiasis [Not Recovered/Not Resolved]
  - Back injury [Recovered/Resolved]
  - Psoriasis [Not Recovered/Not Resolved]
  - Gallbladder hypofunction [Recovering/Resolving]
